FAERS Safety Report 4372819-7 (Version None)
Quarter: 2004Q2

REPORT INFORMATION
  Report Type: 
  Country: None (occurrence: None)
  Receive Date: 20040602
  Receipt Date: 20040427
  Transmission Date: 20050107
  Serious: No
  Sender: FDA-Public Use
  Company Number: 200417742BWH

PATIENT
  Age: 42 Year
  Sex: Male

DRUGS (3)
  1. LEVITRA [Suspect]
     Indication: ERECTILE DYSFUNCTION
     Dosage: 10 MG, QOD, ORAL
     Route: 048
     Dates: start: 20031001, end: 20031101
  2. LEVITRA [Suspect]
     Dosage: 20 MG, QOD, ORAL
     Route: 048
     Dates: start: 20031201
  3. LANTUS [Concomitant]

REACTIONS (1)
  - ERECTILE DYSFUNCTION [None]
